FAERS Safety Report 7450245-1 (Version None)
Quarter: 2011Q2

REPORT INFORMATION
  Report Type: 
  Country: None (occurrence: None)
  Receive Date: 20110502
  Receipt Date: 20110427
  Transmission Date: 20111010
  Serious: Yes (Hospitalization, Other)
  Sender: FDA-Public Use
  Company Number: AU-ABBOTT-11P-008-0721886-00

PATIENT
  Sex: Female

DRUGS (4)
  1. HUMIRA [Suspect]
     Indication: ANKYLOSING SPONDYLITIS
     Dates: start: 20100801
  2. ISONIAZID [Concomitant]
     Indication: TUBERCULOSIS
     Dates: end: 20101101
  3. QUADRUPLE TB CHEMOTHERAPY [Concomitant]
     Indication: TUBERCULOSIS
  4. ANTI-TB THERAPY [Concomitant]
     Indication: TUBERCULOSIS
     Dates: start: 20100217

REACTIONS (2)
  - PULMONARY EMBOLISM [None]
  - TUBERCULOSIS [None]
